FAERS Safety Report 7803407-5 (Version None)
Quarter: 2011Q4

REPORT INFORMATION
  Report Type: 
  Country: None (occurrence: None)
  Receive Date: 20111007
  Receipt Date: 20100816
  Transmission Date: 20120403
  Serious: No
  Sender: FDA-Public Use
  Company Number: US-BAYER-201030913NA

PATIENT
  Sex: Male
  Weight: 86.168 kg

DRUGS (4)
  1. LEVITRA [Suspect]
     Indication: ERECTILE DYSFUNCTION
  2. LIPITOR [Suspect]
     Indication: BLOOD CHOLESTEROL INCREASED
  3. VIAGRA [Suspect]
     Indication: ERECTILE DYSFUNCTION
     Dosage: 100 MG, PRN
     Route: 048
     Dates: start: 20070101
  4. CIALIS [Suspect]
     Indication: ERECTILE DYSFUNCTION

REACTIONS (3)
  - BLOOD CHOLESTEROL INCREASED [None]
  - ERECTILE DYSFUNCTION [None]
  - HYPERTENSION [None]
